FAERS Safety Report 5349424-9 (Version None)
Quarter: 2007Q2

REPORT INFORMATION
  Report Type: 
  Country: None (occurrence: None)
  Receive Date: 20070607
  Receipt Date: 20070530
  Transmission Date: 20071010
  Serious: Yes (Other)
  Sender: FDA-Public Use
  Company Number: GB-ROCHE-500655

PATIENT
  Age: 42 Year
  Sex: Male

DRUGS (2)
  1. XELODA [Suspect]
     Indication: METASTATIC GASTRIC CANCER
     Route: 065
  2. CHEMOTHERAPY NOS [Suspect]
     Indication: METASTATIC GASTRIC CANCER
     Route: 065

REACTIONS (1)
  - EPILEPSY [None]
